FAERS Safety Report 4931389-2 (Version None)
Quarter: 2006Q1

REPORT INFORMATION
  Report Type: 
  Country: None (occurrence: None)
  Receive Date: 20060303
  Receipt Date: 20060221
  Transmission Date: 20060701
  Serious: Yes (Hospitalization)
  Sender: FDA-Public Use
  Company Number: PHBS2006AT02894

PATIENT
  Age: 39 Year
  Sex: Female

DRUGS (1)
  1. METOPROLOL [Suspect]
     Dosage: 100 MG, UNK
     Route: 048

REACTIONS (11)
  - ASTHENIA [None]
  - CIRCULATORY COLLAPSE [None]
  - DEPRESSION [None]
  - DIZZINESS [None]
  - FATIGUE [None]
  - LOSS OF CONSCIOUSNESS [None]
  - MUNCHAUSEN'S SYNDROME [None]
  - SINUS BRADYCARDIA [None]
  - SUICIDAL IDEATION [None]
  - SYNCOPE [None]
  - VERTIGO [None]
